FAERS Safety Report 8423145-8 (Version None)
Quarter: 2012Q2

REPORT INFORMATION
  Report Type: 
  Country: None (occurrence: None)
  Receive Date: 20120608
  Receipt Date: 20120604
  Transmission Date: 20120825
  Serious: Yes (Death)
  Sender: FDA-Public Use
  Company Number: HR-JNJFOC-20120603690

PATIENT

DRUGS (33)
  1. ETOPOSIDE [Suspect]
     Indication: BURKITT'S LEUKAEMIA
     Dosage: DAYS 4, 5
     Route: 065
  2. CYTARABINE [Suspect]
     Indication: BURKITT'S LEUKAEMIA
     Dosage: ON DAYS 4, 5
     Route: 065
  3. METHYLPREDNISOLONE [Suspect]
     Indication: PROPHYLAXIS
     Route: 037
  4. MESNA [Suspect]
     Indication: BURKITT'S LEUKAEMIA
     Route: 065
  5. NEUPOGEN [Concomitant]
     Indication: SUPPORTIVE CARE
     Route: 065
  6. VINCRISTINE [Suspect]
     Indication: BURKITT'S LEUKAEMIA
     Dosage: ON DAY 1
     Route: 065
  7. IFOSFAMIDE [Suspect]
     Indication: BURKITT'S LYMPHOMA
     Dosage: ON DAYS 1-5
     Route: 065
  8. ETOPOSIDE [Suspect]
     Indication: BURKITT'S LYMPHOMA
     Dosage: DAYS 4, 5
     Route: 065
  9. DEXAMETHASONE [Suspect]
     Indication: BURKITT'S LEUKAEMIA
     Dosage: ON DAYS 1-5
     Route: 065
  10. BLOOD PRODUCTS [Concomitant]
     Indication: SUPPORTIVE CARE
     Route: 065
  11. ACYCLOVIR [Concomitant]
     Indication: SUPPORTIVE CARE
     Route: 065
  12. CYTARABINE [Suspect]
     Indication: PROPHYLAXIS
     Route: 037
  13. RITUXIMAB [Suspect]
     Indication: BURKITT'S LEUKAEMIA
     Route: 065
  14. RADIATION THERAPY NOS [Suspect]
     Indication: BURKITT'S LEUKAEMIA
     Dosage: 30-36 GY
     Route: 065
  15. ANTIBIOTICS [Concomitant]
     Indication: SUPPORTIVE CARE
     Route: 065
  16. DOXORUBICIN HCL [Suspect]
     Indication: BURKITT'S LEUKAEMIA
     Dosage: ON DAYS 4, 5
     Route: 042
  17. DOXORUBICIN HCL [Suspect]
     Indication: BURKITT'S LYMPHOMA
     Dosage: ON DAYS 4, 5
     Route: 042
  18. CYCLOPHOSPHAMIDE [Suspect]
     Indication: BURKITT'S LYMPHOMA
     Dosage: ON DAYS 1-5
     Route: 065
  19. VINCRISTINE [Suspect]
     Indication: BURKITT'S LYMPHOMA
     Dosage: ON DAY 1
     Route: 065
  20. METHOTREXATE [Suspect]
     Indication: BURKITT'S LYMPHOMA
     Dosage: ON DAY 1 WITH FOLINIC ACID RESCUE
     Route: 065
  21. METHOTREXATE [Suspect]
     Indication: PROPHYLAXIS
     Route: 037
  22. MESNA [Suspect]
     Indication: BURKITT'S LYMPHOMA
     Route: 065
  23. RITUXIMAB [Suspect]
     Indication: BURKITT'S LYMPHOMA
     Route: 065
  24. CYCLOPHOSPHAMIDE [Suspect]
     Indication: BURKITT'S LEUKAEMIA
     Dosage: ON DAYS 1-5
     Route: 065
  25. IFOSFAMIDE [Suspect]
     Indication: BURKITT'S LEUKAEMIA
     Dosage: ON DAYS 1-5
     Route: 065
  26. PREDNISONE [Suspect]
     Indication: BURKITT'S LEUKAEMIA
     Dosage: DAYS 1-5
     Route: 065
  27. PREDNISONE [Suspect]
     Indication: BURKITT'S LYMPHOMA
     Dosage: DAYS 1-5
     Route: 065
  28. LEUCOVORIN CALCIUM [Suspect]
     Indication: BURKITT'S LEUKAEMIA
     Route: 065
  29. METHOTREXATE [Suspect]
     Indication: BURKITT'S LEUKAEMIA
     Dosage: ON DAY 1 WITH FOLINIC ACID RESCUE
     Route: 065
  30. CYTARABINE [Suspect]
     Indication: BURKITT'S LYMPHOMA
     Dosage: ON DAYS 4, 5
     Route: 065
  31. DEXAMETHASONE [Suspect]
     Indication: BURKITT'S LYMPHOMA
     Dosage: ON DAYS 1-5
     Route: 065
  32. LEUCOVORIN CALCIUM [Suspect]
     Indication: BURKITT'S LYMPHOMA
     Route: 065
  33. RADIATION THERAPY NOS [Suspect]
     Indication: BURKITT'S LYMPHOMA
     Dosage: 30-36 GY
     Route: 065

REACTIONS (1)
  - INFECTION [None]
